FAERS Safety Report 17942542 (Version 1)
Quarter: 2020Q2

REPORT INFORMATION
  Report Type: Spontaneous
  Country: GB (occurrence: GB)
  Receive Date: 20200624
  Receipt Date: 20200624
  Transmission Date: 20200714
  Serious: Yes (Disabling)
  Sender: FDA-Public Use
  Company Number: GB-ASTRAZENECA-2020SE79528

PATIENT
  Age: 73 Year
  Sex: Male
  Weight: 85 kg

DRUGS (22)
  1. LACTULOSE. [Concomitant]
     Active Substance: LACTULOSE
     Dosage: TWICE DAILY, ADJUST DOSE.15.0ML INTERMITTENT
     Dates: start: 20171020
  2. FOSTAIR [Concomitant]
     Active Substance: BECLOMETHASONE\FORMOTEROL
     Dosage: PUFFS, TO BE TAKEN VIA SPACER
     Dates: start: 20191022
  3. ACETYLSALICYLIC ACID [Concomitant]
     Active Substance: ASPIRIN
     Dosage: PREVENTION OF HEAR...
     Dates: start: 20191022
  4. DAPAGLIFLOZIN. [Suspect]
     Active Substance: DAPAGLIFLOZIN
     Route: 048
     Dates: start: 20200424, end: 20200609
  5. GLYCERYL TRINITRATE [Concomitant]
     Active Substance: NITROGLYCERIN
     Dosage: SUCK UNDER THE TONGUE FOR ANGI...1.0DF UNKNOWN
     Dates: start: 20151019
  6. SACUBITRIL [Concomitant]
     Active Substance: SACUBITRIL
     Dosage: TAKE AS DIRECTED BY CARDIO TEAM
     Dates: start: 20191126
  7. SERTRALINE [Concomitant]
     Active Substance: SERTRALINE HYDROCHLORIDE
     Indication: DEPRESSED MOOD
     Dates: start: 20191022
  8. TEGRETOL [Concomitant]
     Active Substance: CARBAMAZEPINE
     Indication: AFFECTIVE DISORDER
     Dosage: TO BE TAKEN AT NIGHT TO STABILISE MOOD [DO ...
     Dates: start: 20191022
  9. SPIRONOLACTONE. [Concomitant]
     Active Substance: SPIRONOLACTONE
     Indication: CARDIAC FAILURE
     Dates: start: 20191022
  10. OMEPRAZOLE. [Concomitant]
     Active Substance: OMEPRAZOLE
     Dosage: TO BE TAKEN WHLIST TAKING AS...
     Dates: start: 20191022
  11. ATORVASTATIN [Concomitant]
     Active Substance: ATORVASTATIN
     Dosage: TAKE AT NIGHT (HIGH INTENSITY STATIN)
     Dates: start: 20191022
  12. ZAPAIN [Concomitant]
     Active Substance: ACETAMINOPHEN\CODEINE PHOSPHATE
     Dosage: ONE OR TWO TO BE TAKEN FOUR TIMES DAILY
     Dates: start: 20191022
  13. TRESIBA [Concomitant]
     Active Substance: INSULIN DEGLUDEC
     Dates: start: 20191018
  14. BISOPROLOL [Concomitant]
     Active Substance: BISOPROLOL
     Indication: ANGINA PECTORIS
     Dosage: TO BE TAKEN AT NIGHT
     Dates: start: 20191022
  15. DESUNIN [Concomitant]
     Active Substance: CHOLECALCIFEROL
     Dosage: TO REPLACE THE ICAL
     Dates: start: 20191022
  16. SALAMOL [Concomitant]
     Active Substance: ALBUTEROL
     Indication: ASTHMA
     Dosage: ONE OR TWO PUFFS - ASTHMA R...
     Route: 055
     Dates: start: 20190111
  17. MIRTAZAPINE. [Concomitant]
     Active Substance: MIRTAZAPINE
     Dosage: NOCTE. DOSE INCREASED FROM 30MG
     Dates: start: 20191022
  18. WARFARIN SODIUM. [Concomitant]
     Active Substance: WARFARIN SODIUM
     Dosage: USE AS DIRECTED
     Dates: start: 20191022
  19. LANOXIN [Concomitant]
     Active Substance: DIGOXIN
     Dosage: TAKE AS PER CARDIO TEAM- THIS IS DI...
     Dates: start: 20191022
  20. CARBOCISTEINE [Concomitant]
     Active Substance: CARBOCYSTEINE
     Dosage: FOR 4 WKS AT A TIME THEN STOP IF NO SYMPT...
     Dates: start: 20190418
  21. BUMETANIDE. [Concomitant]
     Active Substance: BUMETANIDE
     Dosage: TAKE EACH MORNING
     Dates: start: 20191022
  22. NICORANDIL [Concomitant]
     Active Substance: NICORANDIL
     Dosage: IN THE MORNING AND IN THE EVENING- FOR AN...
     Dates: start: 20191022

REACTIONS (3)
  - Benign prostatic hyperplasia [Unknown]
  - Urinary retention [Recovered/Resolved]
  - Urine flow decreased [Recovered/Resolved]

NARRATIVE: CASE EVENT DATE: 20200511
